FAERS Safety Report 7795892-2 (Version None)
Quarter: 2011Q4

REPORT INFORMATION
  Report Type: 
  Country: None (occurrence: None)
  Receive Date: 20111004
  Receipt Date: 20110930
  Transmission Date: 20120403
  Serious: No
  Sender: FDA-Public Use
  Company Number: US-BAYER-2011-080839

PATIENT
  Age: 19 Year
  Sex: Female

DRUGS (1)
  1. BEYAZ [Suspect]
     Indication: MENSTRUAL CYCLE MANAGEMENT
     Dosage: 1 DF, QD
     Route: 048
     Dates: start: 20110701

REACTIONS (3)
  - POLYMENORRHOEA [None]
  - MENORRHAGIA [None]
  - METRORRHAGIA [None]
